FAERS Safety Report 5058395-4 (Version None)
Quarter: 2006Q2

REPORT INFORMATION
  Report Type: 
  Country: None (occurrence: None)
  Receive Date: 20060627
  Receipt Date: 20050825
  Transmission Date: 20061013
  Serious: Yes (Other)
  Sender: FDA-Public Use
  Company Number: 415666

PATIENT
  Sex: Female

DRUGS (2)
  1. XELODA [Suspect]
     Indication: DRUG USE FOR UNKNOWN INDICATION
     Dosage: ORAL
     Route: 048
  2. TAXOTERE [Suspect]

REACTIONS (6)
  - DYSPNOEA [None]
  - FUNGAL INFECTION [None]
  - HYPERSENSITIVITY [None]
  - PARAESTHESIA ORAL [None]
  - SWOLLEN TONGUE [None]
  - URTICARIA [None]
